FAERS Safety Report 20682240 (Version 1)
Quarter: 2022Q2

REPORT INFORMATION
  Report Type: Spontaneous
  Country: US (occurrence: US)
  Receive Date: 20220407
  Receipt Date: 20220407
  Transmission Date: 20220720
  Serious: No
  Sender: FDA-Public Use
  Company Number: None

PATIENT
  Age: 74 Year
  Sex: Male

DRUGS (1)
  1. REVLIMID [Suspect]
     Active Substance: LENALIDOMIDE
     Indication: Plasma cell myeloma
     Dosage: OTHER
     Route: 048
     Dates: start: 202111

REACTIONS (2)
  - Fatigue [Unknown]
  - Memory impairment [Unknown]

NARRATIVE: CASE EVENT DATE: 20220323
